FAERS Safety Report 12970145 (Version 2)
Quarter: 2016Q4

REPORT INFORMATION
  Report Type: Spontaneous
  Country: US (occurrence: US)
  Receive Date: 20161123
  Receipt Date: 20161201
  Transmission Date: 20170207
  Serious: Yes (Hospitalization, Other)
  Sender: FDA-Public Use
  Company Number: US-VALIDUS PHARMACEUTICALS LLC-US-2016VAL003070

PATIENT
  Age: 71 Year
  Sex: Female

DRUGS (2)
  1. ERGOCALCIFEROL. [Suspect]
     Active Substance: ERGOCALCIFEROL
     Indication: PRODUCT USED FOR UNKNOWN INDICATION
     Dosage: 50000 IU, WEEKLY
     Route: 065
  2. VITAMIN D3 [Suspect]
     Active Substance: CHOLECALCIFEROL
     Indication: PRODUCT USED FOR UNKNOWN INDICATION
     Dosage: 50000 IU, QD
     Route: 065

REACTIONS (8)
  - Hypercalcaemia [Recovered/Resolved]
  - Blood parathyroid hormone decreased [Recovered/Resolved]
  - Blood 25-hydroxycholecalciferol increased [Recovered/Resolved]
  - Blood 1,25-dihydroxycholecalciferol increased [Recovered/Resolved]
  - Hypervitaminosis D [Recovered/Resolved]
  - Product use issue [Recovered/Resolved]
  - Pancreatitis acute [Unknown]
  - Acute kidney injury [Unknown]
